FAERS Safety Report 7756326-7 (Version None)
Quarter: 2011Q3

REPORT INFORMATION
  Report Type: 
  Country: None (occurrence: None)
  Receive Date: 20110916
  Receipt Date: 20110912
  Transmission Date: 20111222
  Serious: Yes (Death)
  Sender: FDA-Public Use
  Company Number: JP-ROCHE-781484

PATIENT
  Sex: Female

DRUGS (4)
  1. PREDNISOLONE [Concomitant]
     Route: 048
  2. ENBREL [Concomitant]
     Dosage: DOSAGE IS UNCERTAIN
     Route: 058
     Dates: start: 20081222, end: 20090415
  3. PROGRAF [Concomitant]
     Dosage: FORM: PERORAL AGENT.
     Route: 048
  4. TOCILIZUMAB [Suspect]
     Indication: RHEUMATOID ARTHRITIS
     Route: 041
     Dates: start: 20080822, end: 20081118

REACTIONS (1)
  - DEATH [None]
